FAERS Safety Report 7273507-X (Version None)
Quarter: 2011Q1

REPORT INFORMATION
  Report Type: 
  Country: None (occurrence: None)
  Receive Date: 20110203
  Receipt Date: 20110126
  Transmission Date: 20110831
  Serious: Yes (Other)
  Sender: FDA-Public Use
  Company Number: DE-PFIZER INC-2011018480

PATIENT
  Age: 9 Year

DRUGS (1)
  1. NONACOG ALFA [Suspect]

REACTIONS (1)
  - TRAUMATIC HAEMORRHAGE [None]
